FAERS Safety Report 18039677 (Version 1)
Quarter: 2020Q3

REPORT INFORMATION
  Report Type: Report from Study
  Country: US (occurrence: US)
  Receive Date: 20200717
  Receipt Date: 20200717
  Transmission Date: 20201103
  Serious: Yes (Death)
  Sender: FDA-Public Use
  Company Number: US-ACTELION-A-US2017-153710

PATIENT
  Age: 66 Year
  Sex: Male

DRUGS (8)
  1. SPIRONOLACTONE. [Concomitant]
     Active Substance: SPIRONOLACTONE
  2. TRAMADOL. [Concomitant]
     Active Substance: TRAMADOL
  3. EPLERENONE. [Concomitant]
     Active Substance: EPLERENONE
  4. OPSUMIT [Suspect]
     Active Substance: MACITENTAN
     Indication: PULMONARY ARTERIAL HYPERTENSION
     Dosage: 10 MG, QD
     Route: 048
     Dates: start: 20160628
  5. UPTRAVI [Suspect]
     Active Substance: SELEXIPAG
     Indication: PULMONARY ARTERIAL HYPERTENSION
     Dosage: 800 MCG, TID
     Route: 048
     Dates: start: 20170427
  6. UPTRAVI [Suspect]
     Active Substance: SELEXIPAG
     Dosage: 600 MCG, BID
     Route: 048
  7. UPTRAVI [Suspect]
     Active Substance: SELEXIPAG
     Dosage: 200 MCG, TID
     Route: 048
     Dates: start: 20170502
  8. ADEMPAS [Concomitant]
     Active Substance: RIOCIGUAT

REACTIONS (15)
  - Pain in jaw [Unknown]
  - Productive cough [Unknown]
  - Hypopnoea [Unknown]
  - Cough [Unknown]
  - Gynaecomastia [Unknown]
  - Nipple pain [Recovered/Resolved]
  - Chest pain [Recovered/Resolved]
  - Death [Fatal]
  - Diarrhoea [Unknown]
  - Dry mouth [Unknown]
  - Peripheral swelling [Unknown]
  - Myalgia [Unknown]
  - Neuralgia [Unknown]
  - Arthralgia [Unknown]
  - Impaired quality of life [Unknown]

NARRATIVE: CASE EVENT DATE: 20170502
